FAERS Safety Report 6689355-5 (Version None)
Quarter: 2010Q2

REPORT INFORMATION
  Report Type: 
  Country: None (occurrence: None)
  Receive Date: 20100419
  Receipt Date: 20100419
  Transmission Date: 20101027
  Serious: Yes (Hospitalization)
  Sender: FDA-Public Use
  Company Number: None

PATIENT
  Age: 65 Year
  Sex: Male
  Weight: 83.9154 kg

DRUGS (12)
  1. CETUXIMAB 250 MG/M2 [Suspect]
     Indication: BLADDER CANCER
     Dosage: CETUXIMAB 250 MG/M2 WEEKLY
     Route: 042
     Dates: start: 20091223, end: 20100407
  2. PACLITAXEL [Suspect]
     Indication: BLADDER CANCER
     Dosage: PACLITAXEL 80 MG/M2 WEEKLY
     Route: 042
     Dates: start: 20091223, end: 20100407
  3. OXYCODONE HCL AND ACETAMINOPHEN [Concomitant]
  4. RESTORIL [Concomitant]
  5. OXYCONTIN [Concomitant]
  6. SENOKOT [Concomitant]
  7. LACTULOSE [Concomitant]
  8. MINOCYCLINE HCL [Concomitant]
  9. LISINOPRIL [Concomitant]
  10. METOPROLOL [Concomitant]
  11. FELODIPINE [Concomitant]
  12. ASPIRIN [Concomitant]

REACTIONS (1)
  - LUMBAR VERTEBRAL FRACTURE [None]
